FAERS Safety Report 6297677-5 (Version None)
Quarter: 2009Q3

REPORT INFORMATION
  Report Type: 
  Country: None (occurrence: None)
  Receive Date: 20090805
  Receipt Date: 20090724
  Transmission Date: 20100115
  Serious: Yes (Hospitalization, Other)
  Sender: FDA-Public Use
  Company Number: US-PFIZER INC-2004110104

PATIENT
  Sex: Female
  Weight: 100 kg

DRUGS (6)
  1. PREMARIN [Suspect]
     Indication: HORMONE REPLACEMENT THERAPY
     Dosage: 0.625 MG, UNK
     Route: 048
     Dates: start: 19830101, end: 19960101
  2. PREMARIN [Suspect]
     Dosage: 0.625 MG, UNK
     Dates: start: 19980101, end: 20020101
  3. SYNTHROID [Concomitant]
     Indication: THYROID THERAPY
     Dosage: UNK
     Dates: start: 19900101
  4. DYAZIDE [Concomitant]
     Indication: DIURETIC THERAPY
     Dosage: UNK
     Dates: start: 19800101, end: 20050101
  5. UNITHROID [Concomitant]
     Indication: THYROID THERAPY
     Dosage: UNK
     Dates: start: 19900101
  6. MIACALCIN [Concomitant]
     Indication: OSTEOPOROSIS
     Dosage: UNK
     Dates: start: 19900101

REACTIONS (1)
  - OVARIAN CANCER [None]
